FAERS Safety Report 24376097 (Version 1)
Quarter: 2024Q3

REPORT INFORMATION
  Report Type: Spontaneous
  Country: US (occurrence: None)
  Receive Date: 20240926
  Receipt Date: 20240926
  Transmission Date: 20241017
  Serious: Yes (Life-Threatening, Hospitalization)
  Sender: Public
  Company Number: None

PATIENT
  Age: 82 Year
  Sex: Male
  Weight: 87 kg

DRUGS (4)
  1. ELIQUIS [Suspect]
     Active Substance: APIXABAN
     Indication: Atrial fibrillation
     Dosage: FREQUENCY : TWICE A DAY;?
     Route: 048
     Dates: end: 20230813
  2. ASPIRIN [Suspect]
     Active Substance: ASPIRIN
     Indication: Vascular device user
     Dosage: FREQUENCY : DAILY;?
     Route: 048
  3. ASPIRIN [Suspect]
     Active Substance: ASPIRIN
  4. IBUPROFEN [Suspect]
     Active Substance: IBUPROFEN

REACTIONS (3)
  - Upper gastrointestinal haemorrhage [None]
  - Red blood cell transfusion [None]
  - Gastrointestinal arteriovenous malformation [None]

NARRATIVE: CASE EVENT DATE: 20230813
